FAERS Safety Report 17505143 (Version 1)
Quarter: 2020Q1

REPORT INFORMATION
  Report Type: Spontaneous
  Country: DE (occurrence: DE)
  Receive Date: 20200305
  Receipt Date: 20200305
  Transmission Date: 20200409
  Serious: Yes (Death, Other)
  Sender: FDA-Public Use
  Company Number: DE-OTSUKA-2020_006397

PATIENT
  Sex: Female

DRUGS (8)
  1. DACOGEN [Suspect]
     Active Substance: DECITABINE
     Indication: PLASMA CELL MYELOMA
     Dosage: FIRST CYCLE (20 MG/M2)
     Route: 042
     Dates: start: 201902
  2. DARZALEX [Suspect]
     Active Substance: DARATUMUMAB
     Indication: PLASMA CELL MYELOMA
     Dosage: UNK
     Route: 065
     Dates: start: 201903
  3. ROMIPLOSTIM [Concomitant]
     Active Substance: ROMIPLOSTIM
     Indication: PRODUCT USED FOR UNKNOWN INDICATION
     Dosage: UNK
     Route: 065
     Dates: start: 201907
  4. G-CSF [Concomitant]
     Active Substance: GRANULOCYTE COLONY-STIMULATING FACTOR NOS
     Indication: PRODUCT USED FOR UNKNOWN INDICATION
     Dosage: UNK
     Route: 065
     Dates: start: 201907
  5. VENETOCLAX. [Suspect]
     Active Substance: VENETOCLAX
     Dosage: 2ND CYCLE
     Route: 065
  6. VENETOCLAX. [Suspect]
     Active Substance: VENETOCLAX
     Indication: PLASMA CELL MYELOMA
     Dosage: FIRST CYCLE (70 MG,1 IN 1 D)
     Route: 065
     Dates: start: 201902
  7. DACOGEN [Suspect]
     Active Substance: DECITABINE
     Dosage: 2ND CYCLE
     Route: 042
  8. MELPHALAN. [Suspect]
     Active Substance: MELPHALAN
     Indication: PLASMA CELL MYELOMA
     Dosage: (2 MG)
     Route: 048
     Dates: start: 201908

REACTIONS (4)
  - Disease progression [Fatal]
  - Product use issue [Unknown]
  - Urinary tract infection [Unknown]
  - Off label use [Unknown]
